FAERS Safety Report 5613173-X (Version None)
Quarter: 2008Q1

REPORT INFORMATION
  Report Type: 
  Country: None (occurrence: None)
  Receive Date: 20080129
  Receipt Date: 20080123
  Transmission Date: 20080703
  Serious: Yes (Other)
  Sender: FDA-Public Use
  Company Number: THQ2008A00270

PATIENT
  Age: 59 Year
  Sex: Female

DRUGS (4)
  1. ACTOS [Suspect]
     Indication: TYPE 2 DIABETES MELLITUS
     Dosage: PER ORAL
     Route: 048
     Dates: start: 20071201, end: 20071201
  2. ACTOS [Suspect]
     Indication: TYPE 2 DIABETES MELLITUS
     Dosage: PER ORAL
     Route: 048
     Dates: start: 20071201
  3. METFORMIN HCL [Concomitant]
  4. CHOLESTEROL AND TRIGLYCERIDE REDUCERS [Concomitant]

REACTIONS (1)
  - DIARRHOEA [None]
